FAERS Safety Report 7954772-X (Version None)
Quarter: 2011Q4

REPORT INFORMATION
  Report Type: 
  Country: None (occurrence: None)
  Receive Date: 20111202
  Receipt Date: 20111117
  Transmission Date: 20120403
  Serious: Yes (Hospitalization)
  Sender: FDA-Public Use
  Company Number: FR-ROCHE-1017118

PATIENT
  Sex: Female
  Weight: 76 kg

DRUGS (1)
  1. RANIBIZUMAB [Suspect]
     Indication: DIABETIC RETINAL OEDEMA
     Dosage: DATE OF LAST DOSE PRIOR TO SAE: 27SEP2011
     Route: 050
     Dates: start: 20110529

REACTIONS (2)
  - CONCOMITANT DISEASE PROGRESSION [None]
  - DIABETES MELLITUS [None]
